FAERS Safety Report 9169082 (Version 2)
Quarter: 2013Q2

REPORT INFORMATION
  Report Type: Spontaneous
  Country: US (occurrence: None)
  Receive Date: 20130308
  Receipt Date: 20130416
  Transmission Date: 20140414
  Serious: Yes (Hospitalization, Other)
  Sender: FDA-Public Use
  Company Number: ADR-2013-00364

PATIENT
  Age: 54 Year
  Sex: Female

DRUGS (2)
  1. BACLOFEN [Suspect]
     Indication: MUSCLE SPASTICITY
  2. MORPHINE (INTRATHECAL) [Concomitant]

REACTIONS (3)
  - Feeling hot [None]
  - Unresponsive to stimuli [None]
  - Lethargy [None]
